FAERS Safety Report 19426567 (Version 1)
Quarter: 2021Q2

REPORT INFORMATION
  Report Type: Report from Study
  Country: US (occurrence: US)
  Receive Date: 20210617
  Receipt Date: 20210617
  Transmission Date: 20210717
  Serious: Yes (Hospitalization, Other)
  Sender: FDA-Public Use
  Company Number: US-GILEAD-2021-0535538

PATIENT
  Sex: Male

DRUGS (3)
  1. TOBRAMYCIN SULFATE. [Concomitant]
     Active Substance: TOBRAMYCIN SULFATE
     Dosage: TOBRAMYCIN SULF INHL
  2. TRIKAFTA [Suspect]
     Active Substance: ELEXACAFTOR\IVACAFTOR\TEZACAFTOR
     Indication: CYSTIC FIBROSIS
     Dosage: 100/50/75 MG AND 150 MG TAB
     Route: 065
     Dates: start: 2020, end: 202103
  3. AZTREONAM LYSINE [Suspect]
     Active Substance: AZTREONAM LYSINE
     Indication: CYSTIC FIBROSIS
     Dosage: 75 MG, TID, 28 DAYS ON, THEN 28 DAYS OFF
     Route: 055

REACTIONS (3)
  - Suicidal ideation [Recovered/Resolved]
  - Abdominal pain upper [Unknown]
  - Homicidal ideation [Recovered/Resolved]

NARRATIVE: CASE EVENT DATE: 2020
